FAERS Safety Report 9850406 (Version 2)
Quarter: 2014Q1

REPORT INFORMATION
  Report Type: Spontaneous
  Country: US (occurrence: US)
  Receive Date: 20140128
  Receipt Date: 20140128
  Transmission Date: 20141002
  Serious: No
  Sender: FDA-Public Use
  Company Number: US-ASTRAZENECA-2013SE80631

PATIENT
  Age: 66 Year
  Sex: Male
  Weight: 82.6 kg

DRUGS (11)
  1. CRESTOR [Suspect]
     Indication: CARDIAC VALVE DISEASE
     Route: 048
     Dates: start: 2011, end: 20131028
  2. CRESTOR [Suspect]
     Indication: HYPERLIPIDAEMIA
     Route: 048
     Dates: start: 2011, end: 20131028
  3. CRESTOR [Suspect]
     Indication: CEREBROVASCULAR ACCIDENT
     Route: 048
     Dates: start: 2011, end: 20131028
  4. INSULIN NOVALOG 70 30 VIA PEN [Concomitant]
     Indication: DIABETES MELLITUS
     Dosage: NOT ASKED DAILY
     Route: 058
  5. CLOPIDOGREL [Concomitant]
     Dosage: 75 MG. DAILY
     Route: 048
  6. RAMIPRIL [Concomitant]
     Dosage: 10 MG. DAILY
     Route: 048
  7. HYDROCHLOROT [Concomitant]
     Dosage: 25 MG. DAILY
     Route: 048
  8. DOXAZOSIN [Concomitant]
     Dosage: 2 MG. DAILY
     Route: 048
  9. ASPIRIN [Concomitant]
     Indication: CARDIAC DISORDER
     Dosage: 81 MG. DAILY
     Route: 048
  10. THER M FURTHER DESCRIBED AS A MULTI VITAMIN [Concomitant]
     Indication: VITAMIN SUPPLEMENTATION
     Dosage: NOT ASKED DAILY
     Route: 048
  11. FAMOTIDINE [Concomitant]
     Dosage: 20 MG. DAILY
     Route: 048

REACTIONS (6)
  - Nerve compression [Unknown]
  - Neck pain [Recovering/Resolving]
  - Pain in extremity [Recovering/Resolving]
  - Hypoaesthesia [Not Recovered/Not Resolved]
  - Arthralgia [Recovering/Resolving]
  - Drug dose omission [Unknown]
